FAERS Safety Report 18086458 (Version 4)
Quarter: 2020Q4

REPORT INFORMATION
  Report Type: Report from Study
  Country: None (occurrence: US)
  Receive Date: 20200728
  Receipt Date: 20201124
  Transmission Date: 20210113
  Serious: No
  Sender: FDA-Public Use
  Company Number: US-ABBVIE-20K-163-3498378-00

PATIENT
  Sex: Female

DRUGS (2)
  1. HUMIRA [Suspect]
     Active Substance: ADALIMUMAB
     Indication: HIDRADENITIS
     Dosage: CITRATE FREE
     Route: 058
     Dates: start: 20200618
  2. HUMIRA [Suspect]
     Active Substance: ADALIMUMAB
     Indication: CROHN^S DISEASE

REACTIONS (12)
  - Fatigue [Not Recovered/Not Resolved]
  - Pain in extremity [Not Recovered/Not Resolved]
  - Hidradenitis [Not Recovered/Not Resolved]
  - Eye infection [Unknown]
  - Grief reaction [Not Recovered/Not Resolved]
  - Vision blurred [Unknown]
  - Fungal infection [Recovering/Resolving]
  - Poor quality sleep [Not Recovered/Not Resolved]
  - Eczema [Recovering/Resolving]
  - Unevaluable event [Unknown]
  - Haemorrhage [Not Recovered/Not Resolved]
  - Eye allergy [Unknown]

NARRATIVE: CASE EVENT DATE: 2020
